FAERS Safety Report 6831477-X (Version None)
Quarter: 2010Q3

REPORT INFORMATION
  Report Type: 
  Country: None (occurrence: None)
  Receive Date: 20100712
  Receipt Date: 20100708
  Transmission Date: 20110219
  Serious: Yes (Hospitalization, Disabling)
  Sender: FDA-Public Use
  Company Number: B0664338A

PATIENT
  Age: 71 Year
  Sex: Female

DRUGS (17)
  1. ALBUTEROL [Suspect]
     Indication: CHRONIC OBSTRUCTIVE PULMONARY DISEASE
     Route: 055
  2. COMBIVENT [Suspect]
     Indication: CHRONIC OBSTRUCTIVE PULMONARY DISEASE
     Dosage: 10ML PER DAY
     Route: 055
     Dates: end: 20100623
  3. ISOSORBIDE MONONITRATE [Concomitant]
  4. ATORVASTATIN [Concomitant]
  5. BUMETANIDE [Concomitant]
  6. GLYCERYL TRINITRATE [Concomitant]
  7. CLOPIDOGREL BISULFATE [Concomitant]
  8. LANSOPRAZOLE [Concomitant]
  9. PREDNISOLONE [Concomitant]
  10. CANDESARTAN CILEXETIL [Concomitant]
  11. DIGOXIN [Concomitant]
  12. HUMALOG [Concomitant]
  13. METOCLOPRAMIDE [Concomitant]
  14. ALENDRONIC ACID [Concomitant]
  15. OXYCODONE HCL [Concomitant]
  16. SERETIDE [Concomitant]
  17. IPRATROPIUM BROMIDE [Concomitant]

REACTIONS (5)
  - ACUTE MYOCARDIAL INFARCTION [None]
  - CHEST PAIN [None]
  - CONDITION AGGRAVATED [None]
  - DYSPNOEA [None]
  - TACHYCARDIA [None]
